FAERS Safety Report 25244084 (Version 1)
Quarter: 2025Q2

REPORT INFORMATION
  Report Type: Spontaneous
  Country: JP (occurrence: JP)
  Receive Date: 20250428
  Receipt Date: 20250428
  Transmission Date: 20250716
  Serious: Yes (Death, Hospitalization)
  Sender: AMGEN
  Company Number: JP-DSJP-DS-2025-137596-

PATIENT
  Age: 21 Year
  Sex: Male

DRUGS (2)
  1. DENOSUMAB [Suspect]
     Active Substance: DENOSUMAB
     Indication: Gorham^s disease
     Route: 065
     Dates: start: 201612
  2. SIROLIMUS [Concomitant]
     Active Substance: SIROLIMUS
     Indication: Gorham^s disease
     Route: 065
     Dates: start: 201703

REACTIONS (2)
  - Severe invasive streptococcal infection [Fatal]
  - Off label use [Unknown]

NARRATIVE: CASE EVENT DATE: 20161201
